FAERS Safety Report 12340712 (Version 2)
Quarter: 2016Q2

REPORT INFORMATION
  Report Type: Report from Study
  Country: TH (occurrence: TH)
  Receive Date: 20160506
  Receipt Date: 20160523
  Transmission Date: 20160815
  Serious: Yes (Hospitalization)
  Sender: FDA-Public Use
  Company Number: TH-ASTELLAS-2015US012152

PATIENT
  Age: 51 Year
  Sex: Female
  Weight: 53 kg

DRUGS (6)
  1. ATORVASTATIN [Concomitant]
     Active Substance: ATORVASTATIN
     Indication: HYPERCHOLESTEROLAEMIA
     Dosage: 40 MG, ONCE DAILY IN THE EVENING
     Route: 048
     Dates: start: 20111231
  2. MIRACID [Concomitant]
     Indication: PRODUCT USED FOR UNKNOWN INDICATION
     Route: 065
  3. FOLIC ACID. [Concomitant]
     Active Substance: FOLIC ACID
     Indication: PRODUCT USED FOR UNKNOWN INDICATION
     Route: 065
  4. VITAMIN B COMPLEX [Concomitant]
     Active Substance: CYANOCOBALAMIN\DEXPANTHENOL\NIACINAMIDE\PYRIDOXINE HYDROCHLORIDE\RIBOFLAVIN 5^-PHOSPHATE SODIUM\THIAMINE HYDROCHLORIDE\VITAMIN B COMPLEX
     Indication: PRODUCT USED FOR UNKNOWN INDICATION
     Dosage: UNK UNK, UNKNOWN FREQ.
     Route: 065
  5. SOLIFENACIN-MIRABEGRON [Suspect]
     Active Substance: MIRABEGRON\SOLIFENACIN
     Indication: HYPERTONIC BLADDER
     Dosage: 3 DF, (TABLETS) (SOLIFENACIN 5 MG + MIRABEGRON 50 MG), ONCE DAILY
     Route: 048
     Dates: start: 20150310, end: 20150604
  6. ASPIRIN. [Concomitant]
     Active Substance: ASPIRIN
     Indication: LACUNAR INFARCTION
     Route: 048
     Dates: start: 20111231, end: 20150321

REACTIONS (1)
  - Lacunar infarction [Recovered/Resolved]

NARRATIVE: CASE EVENT DATE: 20150319
